FAERS Safety Report 7834202-9 (Version None)
Quarter: 2011Q4

REPORT INFORMATION
  Report Type: 
  Country: None (occurrence: None)
  Receive Date: 20111024
  Receipt Date: 20111017
  Transmission Date: 20120403
  Serious: Yes (Other)
  Sender: FDA-Public Use
  Company Number: PHEH2001US05230

PATIENT
  Sex: Female
  Weight: 136 kg

DRUGS (4)
  1. VIVELLE-DOT [Suspect]
     Indication: HORMONE REPLACEMENT THERAPY
     Route: 062
     Dates: start: 20000101, end: 20010601
  2. VIVELLE-DOT [Suspect]
     Dosage: 0.075 MG, QW2
     Route: 062
  3. VITAMIN D [Concomitant]
  4. CALCIUM CARBONATE [Concomitant]

REACTIONS (8)
  - ANXIETY [None]
  - MENOPAUSAL SYMPTOMS [None]
  - WRONG TECHNIQUE IN DRUG USAGE PROCESS [None]
  - IRRITABILITY [None]
  - NIGHT SWEATS [None]
  - DRUG INEFFECTIVE [None]
  - FEELING ABNORMAL [None]
  - HOT FLUSH [None]
